FAERS Safety Report 7390238-6 (Version None)
Quarter: 2011Q2

REPORT INFORMATION
  Report Type: 
  Country: None (occurrence: None)
  Receive Date: 20110401
  Receipt Date: 20110325
  Transmission Date: 20111010
  Serious: Yes (Hospitalization)
  Sender: FDA-Public Use
  Company Number: NL-ROCHE-767543

PATIENT
  Sex: Female

DRUGS (3)
  1. EPIRUBICIN [Suspect]
     Indication: GASTRIC CANCER
     Route: 042
     Dates: start: 20110224
  2. CAPECITABINE [Suspect]
     Indication: GASTRIC CANCER
     Dosage: CUMULATIVE DOSE: 64400 MG
     Route: 048
     Dates: start: 20110224
  3. OXALIPLATIN [Suspect]
     Indication: GASTRIC CANCER
     Route: 042
     Dates: start: 20110224

REACTIONS (1)
  - CONCUSSION [None]
